FAERS Safety Report 7931562-5 (Version None)
Quarter: 2011Q4

REPORT INFORMATION
  Report Type: 
  Country: None (occurrence: None)
  Receive Date: 20111121
  Receipt Date: 20111121
  Transmission Date: 20120403
  Serious: No
  Sender: FDA-Public Use
  Company Number: None

PATIENT
  Age: 49 Year
  Sex: Female
  Weight: 60.781 kg

DRUGS (1)
  1. VITAMIN D [Suspect]
     Indication: PRODUCT USED FOR UNKNOWN INDICATION
     Dosage: 50,000 IU CAPS
     Route: 048
     Dates: start: 20100909, end: 20110909

REACTIONS (4)
  - NEPHROLITHIASIS [None]
  - TOXICITY TO VARIOUS AGENTS [None]
  - OVERDOSE [None]
  - PARATHYROID DISORDER [None]
